FAERS Safety Report 4976426-4 (Version None)
Quarter: 2006Q2

REPORT INFORMATION
  Report Type: 
  Country: None (occurrence: None)
  Receive Date: 20060412
  Receipt Date: 20060330
  Transmission Date: 20061013
  Serious: Yes (Other)
  Sender: FDA-Public Use
  Company Number: 2006045026

PATIENT
  Age: 22 Year
  Sex: Female

DRUGS (1)
  1. ZYRTEC [Suspect]
     Indication: RHINITIS SEASONAL
     Dosage: 10 MG (10 MG, 1 IN 1), ORAL
     Route: 048
     Dates: start: 20010101

REACTIONS (3)
  - DRUG DEPENDENCE [None]
  - INSOMNIA [None]
  - PRURITUS [None]
